FAERS Safety Report 17787014 (Version 1)
Quarter: 2020Q2

REPORT INFORMATION
  Report Type: Report from Study
  Country: ES (occurrence: ES)
  Receive Date: 20200514
  Receipt Date: 20200514
  Transmission Date: 20200714
  Serious: Yes (Hospitalization)
  Sender: FDA-Public Use
  Company Number: ES-TEVA-2020-ES-1235520

PATIENT
  Age: 83 Year
  Sex: Male

DRUGS (5)
  1. HIDROXICLOROQUINA (2143A) [Suspect]
     Active Substance: HYDROXYCHLOROQUINE
     Indication: SUSPECTED COVID-19
     Dosage: 400 MG DAY
     Route: 048
     Dates: start: 20200403, end: 20200407
  2. AZITROMICINA (7019A) [Suspect]
     Active Substance: AZITHROMYCIN
     Indication: PNEUMONIA
     Dosage: 500 MG DAY
     Route: 048
     Dates: start: 20200403, end: 20200405
  3. SYMBICORT TURBUHALER 160 MICROGRAMOS/4,5 MICROGRAMOS/INHALACION POLVO [Suspect]
     Active Substance: BUDESONIDE\FORMOTEROL FUMARATE
     Dosage: 6 DOSAGE FORMS DAILY; 2-2-2
     Route: 055
     Dates: start: 20200407, end: 20200414
  4. SALBUTAMOL [Suspect]
     Active Substance: ALBUTEROL
     Indication: BRONCHOSPASM
     Dosage: 6 DOSAGE FORMS DAILY; 2-2-2 INH
     Route: 055
     Dates: start: 20200407, end: 20200414
  5. CEFTRIAXONA (501A) [Suspect]
     Active Substance: CEFTRIAXONE
     Indication: PNEUMONIA
     Dosage: 2 GRAM
     Route: 042
     Dates: start: 20200403, end: 20200404

REACTIONS (2)
  - Hyponatraemia [Recovering/Resolving]
  - Condition aggravated [Recovering/Resolving]

NARRATIVE: CASE EVENT DATE: 20200412
